FAERS Safety Report 4299258-1 (Version None)
Quarter: 2004Q1

REPORT INFORMATION
  Report Type: 
  Country: None (occurrence: None)
  Receive Date: 20040217
  Receipt Date: 20040205
  Transmission Date: 20041129
  Serious: Yes (Other)
  Sender: FDA-Public Use
  Company Number: 2004007906

PATIENT
  Age: 27 Year
  Sex: Female
  Weight: 81.6475 kg

DRUGS (7)
  1. NEURONTIN [Suspect]
     Indication: NEUROPATHY
     Dates: start: 19990401
  2. METHADONE HCL [Concomitant]
  3. VENLAFAXINE HCL [Concomitant]
  4. NABUMETONE [Concomitant]
  5. SENNA FRUIT (SENNA FRUIT) [Concomitant]
  6. LIDOCAINE INFUSION [Concomitant]
  7. CILEST (ETHINYLESTRADIOL, NORGESTIMATE) [Concomitant]

REACTIONS (3)
  - DRY MOUTH [None]
  - TOOTH EXTRACTION [None]
  - TOOTHACHE [None]
